FAERS Safety Report 24377434 (Version 6)
Quarter: 2024Q4

REPORT INFORMATION
  Report Type: Report from Study
  Country: NL (occurrence: NL)
  Receive Date: 20240930
  Receipt Date: 20241119
  Transmission Date: 20250114
  Serious: Yes (Hospitalization, Other)
  Sender: ABBVIE
  Company Number: NL-ABBVIE-5941375

PATIENT
  Sex: Male

DRUGS (14)
  1. CARBIDOPA\LEVODOPA [Suspect]
     Active Substance: CARBIDOPA\LEVODOPA
     Indication: Parkinson^s disease
     Dosage: MD:5.5ML; CD:3.6ML/H; ED:2.5ML; CND:2.5ML/H; END:2.5ML?REMAINS AT 24 HOURS
     Route: 050
     Dates: start: 20240214, end: 20240215
  2. CARBIDOPA\LEVODOPA [Suspect]
     Active Substance: CARBIDOPA\LEVODOPA
     Dosage: REMAINS AT 24 HOURS MD: 6.5ML, CD: 3.0ML/H, ED: 0.10ML
     Route: 050
     Dates: start: 20200921
  3. CARBIDOPA\LEVODOPA [Suspect]
     Active Substance: CARBIDOPA\LEVODOPA
     Dosage: MD: 6.5ML, CD: 3.6ML/H, ED: 2.50ML, CND: 1.7ML/H, END: 2.50ML, REMAINS AT 24 HOURS
     Route: 050
     Dates: start: 20240923, end: 20241009
  4. CARBIDOPA\LEVODOPA [Suspect]
     Active Substance: CARBIDOPA\LEVODOPA
     Dosage: ED: 2.5ML CND: 1.8ML/H, REMAINS AT 24 HOURS
     Route: 050
     Dates: start: 20240215, end: 20240311
  5. CARBIDOPA\LEVODOPA [Suspect]
     Active Substance: CARBIDOPA\LEVODOPA
     Dosage: MD:6.5 ML, CD: 3.6 ML/H, ED: 2.5ML END:2.5ML, CND:1.8 ML/H, ND: 0.0 ML
     Route: 050
     Dates: start: 20240402, end: 20240423
  6. CARBIDOPA\LEVODOPA [Suspect]
     Active Substance: CARBIDOPA\LEVODOPA
     Dosage: MD:6.5ML; CD:3.8ML/H; ED:2.50ML; CND:1.9ML/H; END:2.50ML?REMAINS AT 24 HOURS
     Route: 050
     Dates: start: 20240423, end: 20240710
  7. CARBIDOPA\LEVODOPA [Suspect]
     Active Substance: CARBIDOPA\LEVODOPA
     Dosage: MD: 6.5ML, CD: 3.0ML/H, ED: 0.10ML
     Route: 050
     Dates: start: 20241112
  8. CARBIDOPA\LEVODOPA [Suspect]
     Active Substance: CARBIDOPA\LEVODOPA
     Dosage: MD: 6.5ML, CD: 3.8 ML/H, ED: 2.50ML; CND: 1.9ML/H, END: 2.50ML, REMAINS AT 24 HOURS
     Route: 050
     Dates: start: 20240710, end: 20240923
  9. CARBIDOPA\LEVODOPA [Suspect]
     Active Substance: CARBIDOPA\LEVODOPA
     Dosage: MD: 6.5ML, CD: 3.0ML/H, ED: 0.10ML, CND: 0.8ML/H, END: 0.10ML
     Route: 050
     Dates: start: 20241009, end: 20241112
  10. CARBIDOPA\LEVODOPA [Suspect]
     Active Substance: CARBIDOPA\LEVODOPA
     Dosage: MD:6.5 ML, CD: 3.8 ML/H, ED: 2.5ML END:2.5ML, CND:1.9 ML/H, ND: 0.0 ML?REMAINS AT 24 HOURS
     Route: 050
     Dates: start: 20240311, end: 20240402
  11. CARBIDOPA\LEVODOPA [Suspect]
     Active Substance: CARBIDOPA\LEVODOPA
     Dosage: MD: 6.5ML, CD: 3.0ML/H, ED: 0.10ML, CND: 0.8ML/H, END: 0.10ML
     Route: 050
     Dates: start: 20241112
  12. RIVASTIGMINE [Concomitant]
     Active Substance: RIVASTIGMINE
     Indication: Product used for unknown indication
     Route: 065
  13. CLOZAPINE [Concomitant]
     Active Substance: CLOZAPINE
     Indication: Delirium
     Route: 048
     Dates: start: 20240906
  14. LORAZEPAM [Concomitant]
     Active Substance: LORAZEPAM
     Indication: Delirium
     Route: 048
     Dates: start: 20240906

REACTIONS (27)
  - Drug abuse [Not Recovered/Not Resolved]
  - On and off phenomenon [Recovered/Resolved]
  - Stress [Not Recovered/Not Resolved]
  - Loss of personal independence in daily activities [Unknown]
  - Mental disorder [Not Recovered/Not Resolved]
  - Fatigue [Not Recovered/Not Resolved]
  - Abnormal dreams [Not Recovered/Not Resolved]
  - Restlessness [Not Recovered/Not Resolved]
  - Memory impairment [Not Recovered/Not Resolved]
  - Confusional state [Not Recovered/Not Resolved]
  - Delirium [Not Recovered/Not Resolved]
  - Obsessive-compulsive disorder [Not Recovered/Not Resolved]
  - Agitation [Not Recovered/Not Resolved]
  - Psychotic disorder [Not Recovered/Not Resolved]
  - Muscle rigidity [Recovering/Resolving]
  - Muscle spasms [Not Recovered/Not Resolved]
  - Cognitive disorder [Unknown]
  - Poor quality sleep [Unknown]
  - Unevaluable event [Not Recovered/Not Resolved]
  - Restlessness [Not Recovered/Not Resolved]
  - Delusion [Not Recovered/Not Resolved]
  - Musculoskeletal stiffness [Not Recovered/Not Resolved]
  - Device issue [Not Recovered/Not Resolved]
  - Hallucination [Not Recovered/Not Resolved]
  - Abnormal behaviour [Not Recovered/Not Resolved]
  - Freezing phenomenon [Not Recovered/Not Resolved]
  - Dopamine dysregulation syndrome [Unknown]

NARRATIVE: CASE EVENT DATE: 20240101
